FAERS Safety Report 21897471 (Version 2)
Quarter: 2023Q2

REPORT INFORMATION
  Report Type: Report from Study
  Country: US (occurrence: US)
  Receive Date: 20230123
  Receipt Date: 20230503
  Transmission Date: 20230721
  Serious: No
  Sender: FDA-Public Use
  Company Number: US-BIOVITRUM-2023US01070

PATIENT
  Age: 62 Year
  Sex: Male

DRUGS (2)
  1. KINERET [Suspect]
     Active Substance: ANAKINRA
     Indication: Still^s disease
     Dosage: DAILY
     Route: 058
     Dates: start: 201910
  2. KINERET [Suspect]
     Active Substance: ANAKINRA
     Dosage: DAILY?EVERY OTHER DAY
     Route: 058
     Dates: start: 202212

REACTIONS (5)
  - Intentional product misuse [Unknown]
  - Sinusitis [Unknown]
  - Product use complaint [Unknown]
  - Rash [Unknown]
  - Hypertension [Unknown]

NARRATIVE: CASE EVENT DATE: 20191001
